FAERS Safety Report 9991660 (Version 1)
Quarter: 2014Q1

REPORT INFORMATION
  Report Type: Spontaneous
  Country: US (occurrence: None)
  Receive Date: 20140123
  Receipt Date: 20140123
  Transmission Date: 20141002
  Serious: Yes (Hospitalization)
  Sender: FDA-Public Use
  Company Number: UTC-039960

PATIENT
  Age: 60 Year
  Sex: Male
  Weight: 97.72 kg

DRUGS (2)
  1. TYVASO (6 MICROGRAM, AEROSOL FOR INHALATION)(TREPROSTINIL SODIUM) [Suspect]
     Indication: PULMONARY ARTERIAL HYPERTENSION
     Dosage: 18 TO 54 MCGS (4 IN 1 D), INHALATION
     Route: 055
     Dates: start: 20121120
  2. ADCIRCA (TADALAFIL)(UNKNOWN) [Concomitant]

REACTIONS (3)
  - Haemorrhage [None]
  - Hearing impaired [None]
  - Visual impairment [None]
